FAERS Safety Report 9976442 (Version 1)
Quarter: 2014Q1

REPORT INFORMATION
  Report Type: Report from Study
  Country: US (occurrence: US)
  Receive Date: 20140306
  Receipt Date: 20140306
  Transmission Date: 20141002
  Serious: No
  Sender: FDA-Public Use
  Company Number: US-ABBVIE-13P-163-1165810-00

PATIENT
  Age: 44 Year
  Sex: Female

DRUGS (8)
  1. HUMIRA [Suspect]
     Indication: CROHN^S DISEASE
     Dates: start: 20130318
  2. PERCOCET [Concomitant]
     Indication: PAIN
     Dosage: 5/325 MG
  3. IBUPROFEN [Concomitant]
     Indication: PAIN
  4. CYMBALTA [Concomitant]
     Indication: DEPRESSION
  5. NEURONTIN [Concomitant]
     Indication: DEPRESSION
     Dosage: 300 MG DAILY
  6. BABY ASPIRIN [Concomitant]
     Indication: CEREBROVASCULAR ACCIDENT PROPHYLAXIS
  7. DEXILANT [Concomitant]
     Indication: GASTROOESOPHAGEAL REFLUX DISEASE
     Dosage: 60 MG DAILY
  8. KLONOPIN [Concomitant]
     Indication: INSOMNIA
     Dosage: AT NIGHT

REACTIONS (2)
  - Melanocytic naevus [Not Recovered/Not Resolved]
  - Skin irritation [Not Recovered/Not Resolved]
